FAERS Safety Report 7066882-2 (Version None)
Quarter: 2010Q4

REPORT INFORMATION
  Report Type: 
  Country: None (occurrence: None)
  Receive Date: 20101027
  Receipt Date: 20101006
  Transmission Date: 20110411
  Serious: No
  Sender: FDA-Public Use
  Company Number: US-WYE-H17376110

PATIENT
  Sex: Female
  Weight: 56.75 kg

DRUGS (2)
  1. PREMPRO [Suspect]
     Indication: MENOPAUSAL SYMPTOMS
     Dosage: 0.3/1.5 MG
     Route: 048
     Dates: start: 20100620, end: 20100701
  2. PREMPRO [Suspect]
     Dosage: 0.45MG/1.5 MG
     Route: 048
     Dates: start: 20100701, end: 20100815

REACTIONS (7)
  - BREAST MASS [None]
  - BREAST TENDERNESS [None]
  - DRUG INEFFECTIVE [None]
  - LYMPHADENOPATHY [None]
  - NERVOUSNESS [None]
  - OEDEMA PERIPHERAL [None]
  - PAIN IN EXTREMITY [None]
